FAERS Safety Report 5947670-4 (Version None)
Quarter: 2008Q4

REPORT INFORMATION
  Report Type: 
  Country: None (occurrence: None)
  Receive Date: 20081111
  Receipt Date: 20081103
  Transmission Date: 20090506
  Serious: Yes (Death)
  Sender: FDA-Public Use
  Company Number: GB-RANBAXY-2008RR-19060

PATIENT
  Age: 34 Year
  Sex: Male

DRUGS (5)
  1. ACETAMINOPHEN [Suspect]
  2. AMITRIPTYLINE HCL [Suspect]
  3. TRAMADOL HCL [Suspect]
  4. METAXOLONE [Suspect]
  5. OXYCODONE HCL [Suspect]

REACTIONS (1)
  - INTENTIONAL OVERDOSE [None]
